FAERS Safety Report 10572173 (Version 1)
Quarter: 2014Q4

REPORT INFORMATION
  Report Type: Spontaneous
  Country: DE (occurrence: DE)
  Receive Date: 20141108
  Receipt Date: 20141108
  Transmission Date: 20150529
  Serious: Yes (Other)
  Sender: FDA-Public Use
  Company Number: DE-ASTRAZENECA-2014SE83685

PATIENT
  Age: 55 Year
  Sex: Male

DRUGS (5)
  1. SEROQUEL [Suspect]
     Active Substance: QUETIAPINE FUMARATE
     Route: 048
     Dates: start: 20140801, end: 20140828
  2. ORFIRIL [Interacting]
     Active Substance: VALPROIC ACID
     Route: 048
     Dates: start: 20140801
  3. DIAZEPAM. [Interacting]
     Active Substance: DIAZEPAM
     Route: 048
     Dates: start: 20140801, end: 20140821
  4. CIATYL-Z ACUPHASE [Suspect]
     Active Substance: ZUCLOPENTHIXOL ACETATE
     Route: 030
     Dates: start: 20140824
  5. CIATYL-Z ACUPHASE [Suspect]
     Active Substance: ZUCLOPENTHIXOL ACETATE
     Route: 030
     Dates: start: 20140815, end: 20140815

REACTIONS (3)
  - Disturbance in attention [Unknown]
  - Depressed level of consciousness [Recovered/Resolved]
  - Drug interaction [Recovered/Resolved]

NARRATIVE: CASE EVENT DATE: 20140816
